FAERS Safety Report 4551410-3 (Version None)
Quarter: 2005Q1

REPORT INFORMATION
  Report Type: 
  Country: None (occurrence: None)
  Receive Date: 20050107
  Receipt Date: 20041228
  Transmission Date: 20050727
  Serious: Yes (Other)
  Sender: FDA-Public Use
  Company Number: HQWYE890310DEC04

PATIENT
  Age: 46 Year
  Sex: Female

DRUGS (2)
  1. TAZOCIN (PIPERACILLIN/ TAZOBACTAM, INJECTION) [Suspect]
     Indication: ESCHERICHIA SEPSIS
     Dosage: 2.5 G 3X PER 1 DAY INTRAVENOUS DRIP
     Route: 041
     Dates: start: 20040911, end: 20040913
  2. TAZOCIN (PIPERACILLIN/ TAZOBACTAM, INJECTION) [Suspect]
     Indication: PYELONEPHRITIS ACUTE
     Dosage: 2.5 G 3X PER 1 DAY INTRAVENOUS DRIP
     Route: 041
     Dates: start: 20040911, end: 20040913

REACTIONS (8)
  - ALANINE AMINOTRANSFERASE INCREASED [None]
  - ANOREXIA [None]
  - ASPARTATE AMINOTRANSFERASE INCREASED [None]
  - BLOOD ALKALINE PHOSPHATASE INCREASED [None]
  - BLOOD LACTATE DEHYDROGENASE INCREASED [None]
  - DIARRHOEA [None]
  - FATIGUE [None]
  - HEPATIC FUNCTION ABNORMAL [None]
